FAERS Safety Report 5881360-1 (Version None)
Quarter: 2008Q3

REPORT INFORMATION
  Report Type: 
  Country: None (occurrence: None)
  Receive Date: 20080912
  Receipt Date: 20080630
  Transmission Date: 20090109
  Serious: No
  Sender: FDA-Public Use
  Company Number: US-ABBOTT-08P-163-0460013-00

PATIENT
  Sex: Female
  Weight: 81.266 kg

DRUGS (9)
  1. HUMIRA [Suspect]
     Indication: CROHN'S DISEASE
     Route: 050
     Dates: start: 20080620
  2. NOVALOG INSULIN [Concomitant]
     Indication: TYPE 1 DIABETES MELLITUS
     Route: 058
  3. VENLAFAXINE HCL [Concomitant]
     Indication: DEPRESSION
     Route: 048
  4. VENLAFAXINE HCL [Concomitant]
     Indication: ANXIETY
  5. KONTAZA [Concomitant]
     Indication: DRUG USE FOR UNKNOWN INDICATION
     Route: 048
  6. FISH OIL [Concomitant]
     Indication: DRUG USE FOR UNKNOWN INDICATION
     Route: 048
  7. MVI WITH C [Concomitant]
     Indication: DRUG USE FOR UNKNOWN INDICATION
     Route: 048
  8. MEDROXYPROGESTERONE ACETATE [Concomitant]
     Indication: CONTRACEPTION
     Route: 050
  9. AXOTAL [Concomitant]
     Indication: HEADACHE
     Route: 048

REACTIONS (5)
  - HEADACHE [None]
  - INJECTION SITE PAIN [None]
  - MOOD ALTERED [None]
  - NASAL CONGESTION [None]
  - SINUSITIS [None]
